FAERS Safety Report 9003507 (Version 2)
Quarter: 2013Q1

REPORT INFORMATION
  Report Type: Spontaneous
  Country: JP (occurrence: JP)
  Receive Date: 20130108
  Receipt Date: 20130114
  Transmission Date: 20140127
  Serious: Yes (Death)
  Sender: FDA-Public Use
  Company Number: JP-PFIZER INC-2013005811

PATIENT
  Age: 69 Year
  Sex: Male

DRUGS (6)
  1. HALCION [Suspect]
     Dosage: 0.25 MG, 2X/DAY
     Route: 048
  2. DEPAKENE [Concomitant]
     Dosage: 800 MG, DAILY
     Route: 048
  3. SENNOSIDE A+B CALCIUM [Concomitant]
     Dosage: 36 MG, DAILY
     Route: 048
  4. AKINETON [Concomitant]
     Dosage: 6 MG, DAILY
     Route: 048
  5. ZYPREXA [Concomitant]
     Dosage: 7.5 MG, DAILY
     Route: 048
  6. RISPERDAL [Concomitant]
     Dosage: 0.5 ML, DAILY
     Route: 048

REACTIONS (1)
  - Completed suicide [Fatal]
